FAERS Safety Report 9514795 (Version 1)
Quarter: 2013Q3

REPORT INFORMATION
  Report Type: Spontaneous
  Country: IL (occurrence: IL)
  Receive Date: 20130911
  Receipt Date: 20130911
  Transmission Date: 20140515
  Serious: Yes (Hospitalization)
  Sender: FDA-Public Use
  Company Number: IL-INDICUS PHARMA-000103

PATIENT
  Age: 78 Year
  Sex: Male
  Weight: 82 kg

DRUGS (7)
  1. METFORMIN HYDROCHLORIDE [Suspect]
     Indication: TYPE 2 DIABETES MELLITUS
     Dosage: 850 MG/DAY
  2. PRAVASTATIN [Concomitant]
  3. ATENOLOL [Concomitant]
  4. HYDROCHLOROTHIAZIDE [Concomitant]
  5. AMLODIPINE [Concomitant]
  6. ASPIRIN [Concomitant]
  7. CANDESARTAN [Concomitant]

REACTIONS (2)
  - Hepatocellular injury [Recovered/Resolved]
  - Cholestatic liver injury [Recovered/Resolved]
